FAERS Safety Report 4658888-5 (Version None)
Quarter: 2005Q2

REPORT INFORMATION
  Report Type: 
  Country: None (occurrence: None)
  Receive Date: 20050509
  Receipt Date: 20050425
  Transmission Date: 20051028
  Serious: Yes (Life-Threatening, Hospitalization)
  Sender: FDA-Public Use
  Company Number: WAES 00111635

PATIENT
  Age: 74 Year
  Sex: Male

DRUGS (2)
  1. VIOXX [Suspect]
     Indication: DEMENTIA ALZHEIMER'S TYPE
     Dosage: 25 MG/DAILY/ PO
     Route: 048
  2. PLACEBO (UNSPECIFIED) [Suspect]
     Indication: DEMENTIA ALZHEIMER'S TYPE
     Dosage: PO
     Route: 048

REACTIONS (5)
  - ANAL HAEMORRHAGE [None]
  - FLATULENCE [None]
  - HAEMATOCRIT DECREASED [None]
  - HAEMOGLOBIN DECREASED [None]
  - RECTAL HAEMORRHAGE [None]
